FAERS Safety Report 11730074 (Version 1)
Quarter: 2015Q4

REPORT INFORMATION
  Report Type: Spontaneous
  Country: US (occurrence: US)
  Receive Date: 20151110
  Receipt Date: 20151110
  Transmission Date: 20160304
  Serious: No
  Sender: FDA-Public Use
  Company Number: US-ELI_LILLY_AND_COMPANY-US201112006673

PATIENT
  Sex: Female

DRUGS (2)
  1. CALCIUM [Concomitant]
     Active Substance: CALCIUM
     Dosage: UNK
     Route: 065
  2. FORTEO [Suspect]
     Active Substance: TERIPARATIDE
     Indication: OSTEOPOROSIS
     Dosage: 20 UG, QD
     Route: 065

REACTIONS (8)
  - Joint stiffness [Unknown]
  - Headache [Unknown]
  - Lethargy [Unknown]
  - Bone pain [Unknown]
  - Vitamin D deficiency [Unknown]
  - Muscle spasms [Unknown]
  - Blood calcium increased [Unknown]
  - Pain [Unknown]
